FAERS Safety Report 7561134-6 (Version None)
Quarter: 2011Q2

REPORT INFORMATION
  Report Type: 
  Country: None (occurrence: None)
  Receive Date: 20110621
  Receipt Date: 20110617
  Transmission Date: 20111010
  Serious: Yes (Other)
  Sender: FDA-Public Use
  Company Number: GB-ABBOTT-11P-167-0733553-00

PATIENT
  Sex: Female

DRUGS (1)
  1. CLARITHROMYCIN [Suspect]
     Indication: PRODUCT USED FOR UNKNOWN INDICATION

REACTIONS (10)
  - ANGIOEDEMA [None]
  - EYE SWELLING [None]
  - MALAISE [None]
  - ABNORMAL SENSATION IN EYE [None]
  - OBSTRUCTIVE AIRWAYS DISORDER [None]
  - ABDOMINAL PAIN UPPER [None]
  - SWOLLEN TONGUE [None]
  - LIP SWELLING [None]
  - ANAPHYLACTIC REACTION [None]
  - ASTHMA [None]
